FAERS Safety Report 6998829-9 (Version None)
Quarter: 2010Q3

REPORT INFORMATION
  Report Type: 
  Country: None (occurrence: None)
  Receive Date: 20100920
  Receipt Date: 20070702
  Transmission Date: 20110219
  Serious: Yes (Hospitalization, Other)
  Sender: FDA-Public Use
  Company Number: US-ASTRAZENECA-2006UW24100

PATIENT
  Age: 476 Month
  Sex: Female
  Weight: 124.3 kg

DRUGS (11)
  1. SEROQUEL [Suspect]
     Indication: SCHIZOPHRENIA
     Route: 048
     Dates: start: 19991201, end: 20050501
  2. SEROQUEL [Suspect]
     Indication: DEPRESSION
     Route: 048
     Dates: start: 19991201, end: 20050501
  3. SEROQUEL [Suspect]
     Route: 048
     Dates: start: 20020603
  4. SEROQUEL [Suspect]
     Route: 048
     Dates: start: 20020603
  5. CLOZARIL [Concomitant]
  6. GEODON [Concomitant]
  7. RISPERDAL [Concomitant]
     Dosage: 2 - 10 MG
     Dates: start: 20000915
  8. ZYPREXA [Concomitant]
     Dates: start: 20000804
  9. LORAZEPAM [Concomitant]
     Dates: start: 20000516
  10. WELLBUTRIN [Concomitant]
     Dates: start: 20000915
  11. BENZTROPINE MES [Concomitant]
     Dosage: 0.5MG -1 MG
     Dates: start: 20001103

REACTIONS (4)
  - DIABETES MELLITUS [None]
  - DIABETIC COMA [None]
  - KETOACIDOSIS [None]
  - PANCREATITIS [None]
